FAERS Safety Report 10447775 (Version 3)
Quarter: 2014Q4

REPORT INFORMATION
  Report Type: Report from Study
  Country: US (occurrence: US)
  Receive Date: 20140911
  Receipt Date: 20141027
  Transmission Date: 20150528
  Serious: Yes (Other)
  Sender: FDA-Public Use
  Company Number: US-US-EMD SERONO, INC.-7300238

PATIENT
  Age: 24 Year
  Sex: Female

DRUGS (2)
  1. REBIF [Suspect]
     Active Substance: INTERFERON BETA-1A
     Indication: MULTIPLE SCLEROSIS
     Route: 058
     Dates: start: 20100917, end: 20140611
  2. REBIF [Suspect]
     Active Substance: INTERFERON BETA-1A
     Dates: start: 201409

REACTIONS (4)
  - Abortion late [Recovered/Resolved]
  - Maternal exposure timing unspecified [Recovered/Resolved]
  - Multiple sclerosis relapse [Recovering/Resolving]
  - Abdominal injury [Unknown]

NARRATIVE: CASE EVENT DATE: 201403
